FAERS Safety Report 6915306-1 (Version None)
Quarter: 2010Q3

REPORT INFORMATION
  Report Type: 
  Country: None (occurrence: None)
  Receive Date: 20100809
  Receipt Date: 20091019
  Transmission Date: 20110219
  Serious: No
  Sender: FDA-Public Use
  Company Number: US-ABBOTT-09P-163-0603965-00

PATIENT
  Sex: Female
  Weight: 112.14 kg

DRUGS (4)
  1. DEPAKOTE ER [Suspect]
     Indication: BIPOLAR DISORDER
     Route: 048
     Dates: start: 20091001, end: 20091009
  2. DEPAKOTE [Suspect]
     Indication: BIPOLAR DISORDER
  3. DEPAKOTE [Suspect]
     Dates: start: 20040101, end: 20091001
  4. DEPAKOTE [Suspect]
     Dates: start: 20091009

REACTIONS (3)
  - AGITATION [None]
  - HYPERTENSION [None]
  - WEIGHT INCREASED [None]
